FAERS Safety Report 11209044 (Version 1)
Quarter: 2015Q2

REPORT INFORMATION
  Report Type: Spontaneous
  Country: FI (occurrence: FI)
  Receive Date: 20150622
  Receipt Date: 20150622
  Transmission Date: 20150821
  Serious: Yes (Hospitalization)
  Sender: FDA-Public Use
  Company Number: PHHY2015FI074057

PATIENT
  Age: 4 Day
  Sex: Female

DRUGS (1)
  1. PARACETAMOL [Suspect]
     Active Substance: ACETAMINOPHEN
     Indication: PRODUCT USED FOR UNKNOWN INDICATION
     Dosage: 8.5 MG, TID
     Route: 042

REACTIONS (5)
  - Hypotension [Recovered/Resolved]
  - Overdose [Unknown]
  - Acidosis [Recovered/Resolved]
  - Hypoxia [Recovered/Resolved]
  - Medication error [Unknown]
